FAERS Safety Report 6247771-X (Version None)
Quarter: 2009Q2

REPORT INFORMATION
  Report Type: 
  Country: None (occurrence: None)
  Receive Date: 20090626
  Receipt Date: 20090619
  Transmission Date: 20091009
  Serious: Yes (Death)
  Sender: FDA-Public Use
  Company Number: JP-SANOFI-SYNTHELABO-A01200905341

PATIENT
  Sex: Male
  Weight: 67 kg

DRUGS (15)
  1. TAKEPRON [Concomitant]
     Indication: GASTRIC ULCER
     Route: 065
  2. SIGMART [Concomitant]
     Indication: ANGINA PECTORIS
     Route: 065
  3. SERALA [Concomitant]
     Indication: CARDIAC FAILURE
     Route: 065
     Dates: start: 20090410, end: 20090521
  4. LAMISIL [Suspect]
     Indication: TINEA INFECTION
     Route: 048
     Dates: start: 20090421, end: 20090522
  5. LAMISIL [Suspect]
     Route: 048
     Dates: start: 20090421, end: 20090522
  6. LASIX [Concomitant]
     Indication: CARDIAC FAILURE
     Route: 065
     Dates: end: 20090522
  7. ASPIRIN [Concomitant]
     Indication: ANGINA PECTORIS
     Route: 048
     Dates: end: 20090518
  8. ASPIRIN [Concomitant]
     Route: 048
     Dates: start: 20090519
  9. PLAVIX [Suspect]
     Indication: PERCUTANEOUS CORONARY INTERVENTION
     Dosage: 300 MG ONCE FOLLOWED BY 75 MG DAILY
     Route: 048
     Dates: start: 20090513, end: 20090518
  10. PLAVIX [Suspect]
     Indication: ANGINA UNSTABLE
     Dosage: 300 MG ONCE FOLLOWED BY 75 MG DAILY
     Route: 048
     Dates: start: 20090513, end: 20090518
  11. PLAVIX [Suspect]
     Indication: STENT PLACEMENT
     Dosage: 300 MG ONCE FOLLOWED BY 75 MG DAILY
     Route: 048
     Dates: start: 20090513, end: 20090518
  12. NOVORAPID [Concomitant]
     Indication: DIABETES MELLITUS
     Dosage: UNK
     Route: 065
  13. ALOSITOL [Concomitant]
     Indication: HYPERURICAEMIA
     Route: 065
     Dates: end: 20090522
  14. ITOROL [Concomitant]
     Indication: ANGINA PECTORIS
     Route: 065
     Dates: start: 20090410, end: 20090521
  15. NUROTAN [Concomitant]
     Indication: CARDIAC FAILURE
     Route: 065

REACTIONS (2)
  - HEPATITIS CHOLESTATIC [None]
  - JAUNDICE CHOLESTATIC [None]
